FAERS Safety Report 14946851 (Version 2)
Quarter: 2018Q2

REPORT INFORMATION
  Report Type: Report from Study
  Country: US (occurrence: US)
  Receive Date: 20180529
  Receipt Date: 20180628
  Transmission Date: 20180711
  Serious: No
  Sender: FDA-Public Use
  Company Number: PHHY2018US068602

PATIENT
  Age: 60 Year
  Sex: Female

DRUGS (1)
  1. GILENYA [Suspect]
     Active Substance: FINGOLIMOD HYDROCHLORIDE
     Indication: MULTIPLE SCLEROSIS
     Dosage: UNK, QD
     Route: 048

REACTIONS (14)
  - White blood cell count decreased [Unknown]
  - Alanine aminotransferase increased [Unknown]
  - Bradyphrenia [Unknown]
  - Abdominal pain [Unknown]
  - Dysaesthesia [Unknown]
  - Paraesthesia [Recovered/Resolved]
  - Back pain [Unknown]
  - Fall [Unknown]
  - Pain in extremity [Unknown]
  - Limb injury [Recovered/Resolved]
  - Head injury [Unknown]
  - Pain [Unknown]
  - Aspartate aminotransferase increased [Unknown]
  - Hypoaesthesia [Unknown]

NARRATIVE: CASE EVENT DATE: 20150707
